FAERS Safety Report 9215316 (Version 1)
Quarter: 2013Q2

REPORT INFORMATION
  Report Type: Report from Study
  Country: ES (occurrence: ES)
  Receive Date: 20130405
  Receipt Date: 20130405
  Transmission Date: 20140414
  Serious: Yes (Hospitalization)
  Sender: FDA-Public Use
  Company Number: PHHO2013ES004654

PATIENT
  Age: 72 Year
  Sex: Female

DRUGS (9)
  1. METFORMIN [Suspect]
     Indication: DIABETES MELLITUS
     Dates: start: 20130319
  2. BLINDED BKM120 [Suspect]
     Indication: BREAST CANCER METASTATIC
     Dosage: 100 MG, UNK
     Route: 048
     Dates: start: 20130304
  3. BLINDED NO TREATMENT RECEIVED [Suspect]
     Indication: BREAST CANCER METASTATIC
     Dosage: 100 MG, UNK
     Route: 048
     Dates: start: 20130304
  4. BLINDED PLACEBO [Suspect]
     Indication: BREAST CANCER METASTATIC
     Dosage: 100 MG, UNK
     Route: 048
     Dates: start: 20130304
  5. COMPARATOR FULVESTRANT [Suspect]
     Indication: BREAST CANCER METASTATIC
     Dosage: 500 MG, UNK
     Route: 030
     Dates: start: 20130218
  6. TARGIN [Suspect]
     Indication: BONE PAIN
     Dosage: 80 MG, QD
     Dates: start: 20130313
  7. PAROXETINA [Concomitant]
     Indication: DEPRESSION
     Dosage: 10 MG, QD
     Dates: start: 20130319
  8. SIMVASTATINA [Concomitant]
     Indication: HYPERCHOLESTEROLAEMIA
     Dosage: 10 MG, QD
  9. MYCOSTATIN [Concomitant]
     Dosage: 850 MG, TID (/ 8 HOURS)
     Dates: start: 20130319, end: 20130322

REACTIONS (1)
  - Gastroenteritis [Recovered/Resolved]
